FAERS Safety Report 16885422 (Version 2)
Quarter: 2019Q4

REPORT INFORMATION
  Report Type: Spontaneous
  Country: US (occurrence: US)
  Receive Date: 20191004
  Receipt Date: 20191014
  Transmission Date: 20200122
  Serious: No
  Sender: FDA-Public Use
  Company Number: US-TEVA-2019-US-1116337

PATIENT
  Sex: Female

DRUGS (2)
  1. IVERMECTIN. [Concomitant]
     Active Substance: IVERMECTIN
     Dosage: SHE USED 4 TABLETS
     Route: 065
  2. PERMETHRIN 5% CRM [Suspect]
     Active Substance: PERMETHRIN
     Indication: ACARODERMATITIS
     Dosage: HAD 4 APPLICATIONS OF THE PRODUCT
     Route: 065
     Dates: start: 201908

REACTIONS (2)
  - Drug ineffective [Unknown]
  - Erythema [Unknown]
